FAERS Safety Report 11055478 (Version 1)
Quarter: 2015Q2

REPORT INFORMATION
  Report Type: Spontaneous
  Country: US (occurrence: US)
  Receive Date: 20150422
  Receipt Date: 20150422
  Transmission Date: 20150821
  Serious: No
  Sender: FDA-Public Use
  Company Number: US-PFIZER INC-2015132831

PATIENT
  Age: 67 Year
  Sex: Female
  Weight: 66 kg

DRUGS (3)
  1. GABAPENTIN. [Suspect]
     Active Substance: GABAPENTIN
     Indication: PAIN IN EXTREMITY
     Dosage: 600 MG, 4X/DAY
     Route: 048
     Dates: start: 201405
  2. GABAPENTIN. [Suspect]
     Active Substance: GABAPENTIN
     Dosage: UNK
     Route: 048
  3. CYMBALTA [Suspect]
     Active Substance: DULOXETINE HYDROCHLORIDE
     Indication: NEURALGIA
     Dosage: 60 MG, 1X/DAY
     Route: 048
     Dates: start: 201410, end: 201503

REACTIONS (3)
  - Rash [Unknown]
  - Urticaria [Unknown]
  - Erythema [Unknown]
